FAERS Safety Report 19412151 (Version 7)
Quarter: 2022Q2

REPORT INFORMATION
  Report Type: Spontaneous
  Country: US (occurrence: US)
  Receive Date: 20210614
  Receipt Date: 20220503
  Transmission Date: 20220721
  Serious: Yes (Other)
  Sender: FDA-Public Use
  Company Number: US-LUPIN PHARMACEUTICALS INC.-2021-09407

PATIENT
  Age: 77 Year
  Sex: Female
  Weight: 61.224 kg

DRUGS (2)
  1. ALBUTEROL SULFATE [Suspect]
     Active Substance: ALBUTEROL SULFATE
     Indication: Asthma
     Dosage: UNK, PRN
  2. FLOVENT [Concomitant]
     Active Substance: FLUTICASONE PROPIONATE
     Indication: Asthma
     Dosage: UNK
     Route: 065

REACTIONS (4)
  - Autoimmune disorder [Unknown]
  - Laryngitis [Unknown]
  - Viral infection [Unknown]
  - Device breakage [Unknown]
